FAERS Safety Report 4897275-1 (Version None)
Quarter: 2005Q4

REPORT INFORMATION
  Report Type: 
  Country: None (occurrence: None)
  Receive Date: 20051223
  Receipt Date: 20051026
  Transmission Date: 20060501
  Serious: No
  Sender: FDA-Public Use
  Company Number: 05P-163-0315351-00

PATIENT
  Age: 18 Year
  Sex: Female

DRUGS (5)
  1. HUMIRA [Suspect]
     Indication: JUVENILE ARTHRITIS
     Dosage: 40 MG, 1 IN 2 WK, SUBCUTANEOUS
     Route: 058
     Dates: start: 20040701
  2. METHOTREXATE [Concomitant]
  3. PREDNISONE [Concomitant]
  4. LEUKOURON [Concomitant]
  5. ESOMEPRAZOLE [Concomitant]

REACTIONS (2)
  - INJECTION SITE PAIN [None]
  - RASH ERYTHEMATOUS [None]
